FAERS Safety Report 4514641-4 (Version None)
Quarter: 2004Q3

REPORT INFORMATION
  Report Type: 
  Country: None (occurrence: None)
  Receive Date: 20040927
  Receipt Date: 20040225
  Transmission Date: 20050211
  Serious: Yes (Other)
  Sender: FDA-Public Use
  Company Number: UK059135

PATIENT
  Age: 91 Year
  Sex: Female
  Weight: 40.1 kg

DRUGS (10)
  1. NEULASTA [Suspect]
     Indication: CHEMOTHERAPY
     Dosage: 6 MG, 1 IN 3 WEEKS, SC
     Route: 058
     Dates: start: 20031001
  2. CYCLOPHOSPHAMIDE [Suspect]
     Dosage: 7 50 MG/M2, 1 IN 3 WEEKS
     Dates: start: 20031001
  3. DOXORUBICIN HCL [Suspect]
     Dosage: 50 MG/M2, 1 IN 3 WEEKS
     Dates: start: 20031001
  4. VINCRISTINE SULFATE [Suspect]
     Dosage: 1 MG, 1 IN 3 WEEKS
  5. PREDNISONE [Concomitant]
  6. CLEMASTINE [Concomitant]
  7. CIMETIDINE [Concomitant]
  8. PARACETAMOL [Concomitant]
  9. GRANISETRON [Concomitant]
  10. RITUXIMAB [Concomitant]

REACTIONS (2)
  - NEUTROPENIA [None]
  - THROMBOCYTOPENIA [None]
